FAERS Safety Report 19308348 (Version 5)
Quarter: 2021Q3

REPORT INFORMATION
  Report Type: Report from Study
  Country: US (occurrence: US)
  Receive Date: 20210525
  Receipt Date: 20210827
  Transmission Date: 20211014
  Serious: Yes (Other)
  Sender: FDA-Public Use
  Company Number: US-SEATTLE GENETICS-2021SGN02767

PATIENT
  Age: 49 Year
  Sex: Female

DRUGS (5)
  1. IBUPROFEN. [Concomitant]
     Active Substance: IBUPROFEN
  2. TUCATINIB [Suspect]
     Active Substance: TUCATINIB
     Indication: BREAST CANCER FEMALE
     Dosage: UNK
     Dates: start: 20210416
  3. CYMBALTA [Concomitant]
     Active Substance: DULOXETINE HYDROCHLORIDE
  4. XELODA [Concomitant]
     Active Substance: CAPECITABINE
  5. TUCATINIB [Suspect]
     Active Substance: TUCATINIB
     Dosage: UNK

REACTIONS (22)
  - Haemorrhoids [Recovered/Resolved]
  - Blood pressure increased [Recovered/Resolved]
  - Parosmia [Recovering/Resolving]
  - Abdominal distension [Recovering/Resolving]
  - Decreased appetite [Recovering/Resolving]
  - Hepatic enzyme increased [Not Recovered/Not Resolved]
  - Fatigue [Recovering/Resolving]
  - Nausea [Recovering/Resolving]
  - Hypokinesia [Recovering/Resolving]
  - Asthenia [Recovering/Resolving]
  - Rectal haemorrhage [Recovered/Resolved]
  - Brain neoplasm [Not Recovered/Not Resolved]
  - Unevaluable event [Not Recovered/Not Resolved]
  - Gastric disorder [Unknown]
  - Illness [Unknown]
  - Neuropathy peripheral [Recovering/Resolving]
  - Gingival bleeding [Recovered/Resolved]
  - Feeling hot [Recovering/Resolving]
  - Gait disturbance [Recovering/Resolving]
  - Acne [Recovering/Resolving]
  - Emotional distress [Unknown]
  - Diarrhoea [Recovering/Resolving]

NARRATIVE: CASE EVENT DATE: 20201012
